FAERS Safety Report 9669587 (Version 3)
Quarter: 2013Q4

REPORT INFORMATION
  Report Type: Report from Study
  Country: DK (occurrence: DK)
  Receive Date: 20131105
  Receipt Date: 20131126
  Transmission Date: 20140711
  Serious: Yes (Life-Threatening)
  Sender: FDA-Public Use
  Company Number: PHHO2013DK014172

PATIENT
  Sex: 0

DRUGS (11)
  1. ALISKIREN [Suspect]
     Indication: CARDIAC FAILURE CHRONIC
     Dosage: UNK
     Route: 048
     Dates: start: 20110823, end: 20131021
  2. ENALAPRIL [Suspect]
     Indication: CARDIAC FAILURE CHRONIC
     Dosage: UNK
     Route: 048
     Dates: start: 20110823, end: 20131021
  3. MAREVAN [Concomitant]
     Indication: PROPHYLAXIS
     Dosage: AFTER ORDINATION
     Dates: start: 20121107
  4. FURIX [Concomitant]
     Indication: CARDIAC FAILURE
     Dosage: 20 MG, BID
     Route: 048
     Dates: start: 20121030, end: 20130815
  5. CARVEDILOL [Concomitant]
     Indication: CARDIAC FAILURE
     Dosage: 25 MG, BID
     Route: 048
     Dates: start: 20121107
  6. SIMVASTATIN [Concomitant]
     Indication: PROPHYLAXIS
     Dosage: 40 MG, BID
     Route: 048
     Dates: start: 19961030
  7. SPIRIX [Concomitant]
     Indication: CARDIAC FAILURE
     Dosage: 25 MG, BID
     Route: 048
     Dates: start: 20120316
  8. PROBENECID [Concomitant]
     Indication: ARTHRITIS
     Dosage: 250 MG, BID
     Dates: start: 20130501
  9. FERN C [Concomitant]
     Indication: ANAEMIA
     Dosage: 100 MG, BID
     Route: 048
     Dates: start: 20131021
  10. RAMIPRIL [Concomitant]
     Indication: CARDIAC FAILURE
     Dosage: 1.25 MG, BID
     Route: 048
     Dates: start: 20131023
  11. CORDARONE [Concomitant]
     Indication: CARDIAC FAILURE
     Dosage: 200 MG, BID
     Route: 048
     Dates: start: 20131021

REACTIONS (2)
  - Ventricular tachycardia [Recovered/Resolved]
  - Cardiac disorder [Recovered/Resolved]
